FAERS Safety Report 9943483 (Version 1)
Quarter: 2014Q1

REPORT INFORMATION
  Report Type: Report from Study
  Country: US (occurrence: US)
  Receive Date: 20140303
  Receipt Date: 20140303
  Transmission Date: 20141002
  Serious: No
  Sender: FDA-Public Use
  Company Number: US-ABBVIE-13P-163-1048065-00

PATIENT
  Sex: Female
  Weight: 58.11 kg

DRUGS (10)
  1. HUMIRA [Suspect]
     Indication: PSORIATIC ARTHROPATHY
     Route: 058
     Dates: start: 2009, end: 20120731
  2. HUMIRA [Suspect]
     Route: 058
     Dates: start: 201302
  3. METHADONE [Concomitant]
     Indication: PAIN MANAGEMENT
  4. LORTAB [Concomitant]
     Indication: PAIN MANAGEMENT
  5. SOMA [Concomitant]
     Indication: PRODUCT USED FOR UNKNOWN INDICATION
  6. PRILOSEC [Concomitant]
     Indication: GASTRIC ULCER
  7. ZOFRAN [Concomitant]
     Indication: ABDOMINAL DISCOMFORT
  8. BENADRYL [Concomitant]
     Indication: SEASONAL ALLERGY
  9. VITAMIN D3 [Concomitant]
     Indication: OSTEOPOROSIS
  10. MAGNESIUM [Concomitant]
     Indication: MINERAL SUPPLEMENTATION

REACTIONS (1)
  - Cystitis [Recovered/Resolved]
